FAERS Safety Report 9918091 (Version 1)
Quarter: 2014Q1

REPORT INFORMATION
  Report Type: Spontaneous
  Country: US (occurrence: US)
  Receive Date: 20140223
  Receipt Date: 20140223
  Transmission Date: 20141002
  Serious: No
  Sender: FDA-Public Use
  Company Number: US-ALLERGAN-1316715US

PATIENT
  Age: 50 Year
  Sex: Female

DRUGS (2)
  1. TAZORAC GEL 0.05% [Suspect]
     Indication: PRODUCT USED FOR UNKNOWN INDICATION
  2. PANOXYL [Suspect]
     Indication: PRODUCT USED FOR UNKNOWN INDICATION

REACTIONS (6)
  - Hypersensitivity [Not Recovered/Not Resolved]
  - Lip dry [Not Recovered/Not Resolved]
  - Swelling face [Not Recovered/Not Resolved]
  - Rash [Not Recovered/Not Resolved]
  - Erythema [Not Recovered/Not Resolved]
  - Dry skin [Not Recovered/Not Resolved]
